FAERS Safety Report 15245362 (Version 1)
Quarter: 2018Q3

REPORT INFORMATION
  Report Type: Spontaneous
  Country: US (occurrence: US)
  Receive Date: 20180713
  Receipt Date: 20180713
  Transmission Date: 20181010
  Serious: Yes (Life-Threatening, Hospitalization, Other)
  Sender: FDA-Public Use
  Company Number: None

PATIENT
  Age: 76 Year
  Sex: Male
  Weight: 63 kg

DRUGS (5)
  1. AMLODIPINE 5MG DAILY [Concomitant]
     Dates: start: 20180101, end: 20180711
  2. LOVASTATIN 10MG DAILY [Concomitant]
     Dates: start: 20180101, end: 20180711
  3. ASPIRIN 81MG DAILY [Concomitant]
     Dates: start: 20180328, end: 20180711
  4. METOPROLOL SUCCINATE 12.5MG DAILY [Concomitant]
     Dates: start: 20180101, end: 20180711
  5. ELIQUIS [Suspect]
     Active Substance: APIXABAN
     Indication: ATRIAL FIBRILLATION
     Route: 048
     Dates: start: 20180328, end: 20180711

REACTIONS (1)
  - Haemorrhagic stroke [None]

NARRATIVE: CASE EVENT DATE: 20180711
